FAERS Safety Report 11841389 (Version 1)
Quarter: 2015Q4

REPORT INFORMATION
  Report Type: Spontaneous
  Country: US (occurrence: US)
  Receive Date: 20151216
  Receipt Date: 20151216
  Transmission Date: 20160305
  Serious: Yes (Hospitalization)
  Sender: FDA-Public Use
  Company Number: US-UNICHEM LABORATORIES LIMITED-UCM201512-000894

PATIENT
  Age: 51 Year
  Sex: Female

DRUGS (5)
  1. CIPROFLOXACIN. [Suspect]
     Active Substance: CIPROFLOXACIN
     Indication: DIVERTICULITIS
  2. OXYCONTIN [Concomitant]
     Active Substance: OXYCODONE HYDROCHLORIDE
     Indication: BACK PAIN
  3. OXYCODONE [Concomitant]
     Active Substance: OXYCODONE
     Indication: BACK PAIN
  4. TIZANIDINE. [Suspect]
     Active Substance: TIZANIDINE
     Indication: BACK PAIN
  5. METRONIDAZOLE. [Suspect]
     Active Substance: METRONIDAZOLE
     Indication: DIVERTICULITIS

REACTIONS (6)
  - Thrombocytopenia [Unknown]
  - Orthostatic hypotension [Unknown]
  - Dizziness [Unknown]
  - Drug interaction [Unknown]
  - Headache [Unknown]
  - Renal impairment [Unknown]
